FAERS Safety Report 5952198-1 (Version None)
Quarter: 2008Q4

REPORT INFORMATION
  Report Type: 
  Country: None (occurrence: None)
  Receive Date: 20081113
  Receipt Date: 20081106
  Transmission Date: 20090506
  Serious: Yes (Other)
  Sender: FDA-Public Use
  Company Number: GB-ABBOTT-08P-167-0486258-00

PATIENT
  Age: 13 Year
  Sex: Male
  Weight: 50 kg

DRUGS (4)
  1. HUMIRA [Suspect]
     Indication: CROHN'S DISEASE
     Dates: start: 20080911, end: 20080911
  2. HUMIRA [Suspect]
     Dates: start: 20080926, end: 20080926
  3. HUMIRA [Suspect]
     Dates: start: 20081009
  4. METHOTREXATE [Concomitant]
     Indication: CROHN'S DISEASE

REACTIONS (3)
  - MALAISE [None]
  - RASH GENERALISED [None]
  - WEIGHT DECREASED [None]
